FAERS Safety Report 8783329 (Version 1)
Quarter: 2012Q4

REPORT INFORMATION
  Report Type: 
  Country: US (occurrence: US)
  Receive Date: 20120913
  Receipt Date: 20120913
  Transmission Date: 20130627
  Serious: No
  Sender: FDA-Public Use
  Company Number: US-VERTEX PHARMACEUTICAL INC.-AE-2012-008979

PATIENT
  Age: 55 Year
  Sex: Female

DRUGS (3)
  1. INCIVEK [Suspect]
     Indication: HEPATITIS C
     Route: 048
     Dates: start: 20120412
  2. PEGINTERFERON [Concomitant]
     Indication: HEPATITIS C
     Dates: start: 20120412
  3. RIBAVIRIN [Concomitant]
     Indication: HEPATITIS C
     Dates: start: 20120412

REACTIONS (2)
  - Fatigue [Unknown]
  - Rash [Unknown]
